FAERS Safety Report 8134586-0 (Version None)
Quarter: 2012Q1

REPORT INFORMATION
  Report Type: 
  Country: None (occurrence: None)
  Receive Date: 20120210
  Receipt Date: 20120201
  Transmission Date: 20120608
  Serious: Yes (Death, Hospitalization)
  Sender: FDA-Public Use
  Company Number: 1000027833

PATIENT
  Age: 64 Year
  Sex: Female
  Weight: 80.74 kg

DRUGS (6)
  1. LISINOPRIL [Concomitant]
  2. CELEXA [Suspect]
     Indication: DEPRESSION
     Dosage: 40 MG, 1 IN 1 D, ORAL
     Route: 048
     Dates: start: 20101226, end: 20111218
  3. PROPRANOLOL [Suspect]
     Indication: AKATHISIA
     Dosage: 20 MG (10 MG, 2 IN 1 D), ORAL
     Route: 048
     Dates: start: 20101226, end: 20111218
  4. INVEGA [Suspect]
     Indication: SCHIZOAFFECTIVE DISORDER
     Dosage: 234 MG 1 IN 4 WK, INTRAMUSCULAR
     Route: 030
     Dates: start: 20111215
  5. INVEGA [Suspect]
     Indication: SCHIZOAFFECTIVE DISORDER
     Dosage: 234 MG 1 IN 4 WK, INTRAMUSCULAR
     Route: 030
     Dates: start: 20111117
  6. INVEGA [Suspect]
     Indication: SCHIZOAFFECTIVE DISORDER
     Dosage: 234 MG 1 IN 4 WK, INTRAMUSCULAR
     Route: 030
     Dates: start: 20111021

REACTIONS (2)
  - RESPIRATORY ARREST [None]
  - CHOKING [None]
